FAERS Safety Report 6973553-7 (Version None)
Quarter: 2010Q3

REPORT INFORMATION
  Report Type: 
  Country: None (occurrence: None)
  Receive Date: 20100909
  Receipt Date: 20100830
  Transmission Date: 20110219
  Serious: Yes (Other)
  Sender: FDA-Public Use
  Company Number: B0672263A

PATIENT
  Sex: Female

DRUGS (3)
  1. ALLI [Suspect]
     Indication: PRODUCT USED FOR UNKNOWN INDICATION
     Dosage: 2TABS PER DAY
     Route: 065
     Dates: start: 20100804
  2. DEPAKENE [Concomitant]
     Dosage: 1000MG PER DAY
  3. IMOVANE [Concomitant]
     Indication: SLEEP DISORDER
     Dosage: 7.5MG PER DAY

REACTIONS (7)
  - CONTUSION [None]
  - DIARRHOEA [None]
  - EPILEPSY [None]
  - GRAND MAL CONVULSION [None]
  - MUSCULOSKELETAL PAIN [None]
  - MYOCLONUS [None]
  - TONGUE BITING [None]
